FAERS Safety Report 4417793-X (Version None)
Quarter: 2004Q2

REPORT INFORMATION
  Report Type: 
  Country: None (occurrence: None)
  Receive Date: 20040621
  Receipt Date: 20040226
  Transmission Date: 20050107
  Serious: No
  Sender: FDA-Public Use
  Company Number: PHEH2003US10507

PATIENT
  Age: 70 Year
  Sex: Female
  Weight: 68.9 kg

DRUGS (2)
  1. ZOMETA [Suspect]
     Indication: BLOOD DISORDER
     Dosage: 4 MG EVERY 4 WEEKS, INTRAVENOUS
     Route: 042
     Dates: start: 20030724, end: 20031113
  2. IRON SUPPLEMENTS [Concomitant]

REACTIONS (2)
  - HAIR TEXTURE ABNORMAL [None]
  - HYPOTRICHOSIS [None]
